FAERS Safety Report 8387520-2 (Version None)
Quarter: 2012Q2

REPORT INFORMATION
  Report Type: 
  Country: None (occurrence: None)
  Receive Date: 20120525
  Receipt Date: 20120521
  Transmission Date: 20120825
  Serious: Yes (Death, Life-Threatening)
  Sender: FDA-Public Use
  Company Number: MX-CELGENEUS-163-C5013-11102449

PATIENT
  Sex: Male
  Weight: 152 kg

DRUGS (17)
  1. DOCETAXEL [Suspect]
     Dosage: 195
     Route: 065
     Dates: start: 20110929, end: 20111003
  2. PREDNISONE TAB [Suspect]
     Indication: PROSTATE CANCER
     Dosage: 5 MILLIGRAM
     Route: 065
     Dates: start: 20110616, end: 20110620
  3. METOCLOPRAMIDE [Concomitant]
     Dosage: 10 MILLIGRAM
     Route: 041
     Dates: start: 20110801, end: 20110801
  4. ACETAMINOPHEN [Concomitant]
     Dosage: 500 MILLIGRAM
     Route: 048
     Dates: start: 20110902, end: 20110905
  5. RANITIDINE [Concomitant]
     Dosage: 50 MILLIGRAM
     Route: 041
     Dates: start: 20110708, end: 20110708
  6. RANITIDINE [Concomitant]
     Indication: GASTRITIS PROPHYLAXIS
     Dosage: 50 MILLIGRAM
     Route: 041
     Dates: start: 20110620, end: 20110620
  7. ONDANSETRON [Concomitant]
     Dosage: 4 MILLIGRAM
     Route: 041
     Dates: start: 20110801, end: 20110801
  8. ONDANSETRON [Concomitant]
  9. BECLOTRIM [Concomitant]
     Route: 062
     Dates: start: 20110902, end: 20110912
  10. LENALIDOMIDE [Suspect]
     Dosage: 25 MILLIGRAM
     Route: 048
     Dates: start: 20110929, end: 20111023
  11. PREDNISONE TAB [Suspect]
     Dosage: 5 MILLIGRAM
     Route: 065
     Dates: start: 20110929, end: 20111003
  12. CEPHALEXIN [Concomitant]
     Dosage: 500 MILLIGRAM
     Route: 048
     Dates: start: 20110902, end: 20110909
  13. LENALIDOMIDE [Suspect]
     Indication: PROSTATE CANCER
     Dosage: 25 MILLIGRAM
     Route: 048
     Dates: start: 20110616, end: 20110620
  14. DEXAMETHASONE [Concomitant]
     Indication: ALLERGY PROPHYLAXIS
     Dosage: 8 MILLIGRAM
     Route: 041
     Dates: start: 20110620, end: 20110620
  15. DICLOFENAC [Concomitant]
     Dosage: 100 MILLIGRAM
     Route: 048
     Dates: start: 20110902, end: 20110905
  16. DOCETAXEL [Suspect]
     Indication: PROSTATE CANCER
     Dosage: 195
     Route: 065
     Dates: start: 20110616, end: 20110620
  17. METOCLOPRAMIDE [Concomitant]
     Dosage: 10 MILLIGRAM
     Route: 041
     Dates: start: 20110620, end: 20110620

REACTIONS (2)
  - PNEUMONIA [None]
  - ACUTE MYOCARDIAL INFARCTION [None]
